FAERS Safety Report 8118751-4 (Version None)
Quarter: 2012Q1

REPORT INFORMATION
  Report Type: 
  Country: None (occurrence: None)
  Receive Date: 20120202
  Receipt Date: 20120130
  Transmission Date: 20120608
  Serious: Yes (Other)
  Sender: FDA-Public Use
  Company Number: 2012MA001366

PATIENT
  Age: 49 Year
  Sex: Male
  Weight: 84 kg

DRUGS (5)
  1. ACETAMINOPHEN [Concomitant]
  2. BUPIVACAINE HCL [Concomitant]
  3. PAREGORIC LIQUID USP (ALPHARMA) (PAREGORIC) [Suspect]
  4. FENTANYL [Concomitant]
  5. DEXKETOPROFEN [Concomitant]

REACTIONS (10)
  - WRONG DRUG ADMINISTERED [None]
  - EFFUSION [None]
  - ATELECTASIS [None]
  - ANAESTHETIC COMPLICATION [None]
  - PNEUMOTHORAX [None]
  - MUSCULOSKELETAL PAIN [None]
  - DEPRESSED LEVEL OF CONSCIOUSNESS [None]
  - OXYGEN SATURATION DECREASED [None]
  - HYPOTENSION [None]
  - INCORRECT DOSE ADMINISTERED [None]
